FAERS Safety Report 6982459-9 (Version None)
Quarter: 2010Q3

REPORT INFORMATION
  Report Type: 
  Country: None (occurrence: None)
  Receive Date: 20100914
  Receipt Date: 20100203
  Transmission Date: 20110219
  Serious: Yes (Death)
  Sender: FDA-Public Use
  Company Number: US-PFIZER INC-2010015703

PATIENT
  Sex: Female

DRUGS (3)
  1. LYRICA [Suspect]
     Indication: FIBROMYALGIA
     Dosage: UNK
     Route: 048
     Dates: start: 20100101
  2. LYRICA [Suspect]
     Indication: INFLUENZA
  3. LYRICA [Suspect]
     Indication: ABDOMINAL PAIN UPPER

REACTIONS (2)
  - COMPLETED SUICIDE [None]
  - NAUSEA [None]
